FAERS Safety Report 7232312-0 (Version None)
Quarter: 2011Q1

REPORT INFORMATION
  Report Type: 
  Country: None (occurrence: None)
  Receive Date: 20110106
  Receipt Date: 20101222
  Transmission Date: 20110831
  Serious: Yes (Other)
  Sender: FDA-Public Use
  Company Number: 024116

PATIENT
  Sex: Male

DRUGS (5)
  1. DUPHALAC /01526201/ [Concomitant]
  2. LACOSAMIDE [Suspect]
     Dosage: (50 MG BID ORAL), (200 MG BID, GRADUAL INCREASE BY 100 MG EACH WEEK ORAL), (100 MG BID ORAL)
     Route: 048
     Dates: start: 20100830, end: 20100101
  3. LACOSAMIDE [Suspect]
     Dosage: (50 MG BID ORAL), (200 MG BID, GRADUAL INCREASE BY 100 MG EACH WEEK ORAL), (100 MG BID ORAL)
     Route: 048
     Dates: start: 20100101, end: 20100101
  4. LACOSAMIDE [Suspect]
     Dosage: (50 MG BID ORAL), (200 MG BID, GRADUAL INCREASE BY 100 MG EACH WEEK ORAL), (100 MG BID ORAL)
     Route: 048
     Dates: start: 20100101
  5. DIAZEPAM [Concomitant]

REACTIONS (2)
  - STRIDOR [None]
  - SUFFOCATION FEELING [None]
